FAERS Safety Report 5116275-X (Version None)
Quarter: 2006Q3

REPORT INFORMATION
  Report Type: 
  Country: None (occurrence: None)
  Receive Date: 20060925
  Receipt Date: 20060914
  Transmission Date: 20061208
  Serious: Yes (Death)
  Sender: FDA-Public Use
  Company Number: B0438960A

PATIENT
  Age: 41 Year
  Sex: Female

DRUGS (5)
  1. PAXIL [Suspect]
  2. COCAINE (COCAINE) [Suspect]
  3. BENZOYLECOGNINE [Suspect]
  4. DIPHENHYDRAMINE HCL [Suspect]
  5. QUETIAPINE FUMARATE [Suspect]

REACTIONS (5)
  - COMPLETED SUICIDE [None]
  - EMPHYSEMA [None]
  - HEPATIC STEATOSIS [None]
  - INTENTIONAL OVERDOSE [None]
  - MULTI-ORGAN DISORDER [None]
